FAERS Safety Report 9805776 (Version 2)
Quarter: 2014Q3

REPORT INFORMATION
  Report Type: Spontaneous
  Country: AT (occurrence: AT)
  Receive Date: 20140109
  Receipt Date: 20140701
  Transmission Date: 20150326
  Serious: Yes (Death)
  Sender: FDA-Public Use
  Company Number: AT-PFIZER INC-2014001862

PATIENT
  Age: 75 Year
  Sex: Female

DRUGS (2)
  1. METRONIDAZOLE. [Suspect]
     Active Substance: METRONIDAZOLE
     Indication: ANTIBIOTIC THERAPY
     Dosage: 500 MG, 3X/DAY
     Route: 042
  2. AMOXICILLIN TRIHYDRATE/CLAVULANIC ACID [Suspect]
     Active Substance: AMOXICILLIN\CLAVULANATE POTASSIUM
     Indication: ANTIBIOTIC THERAPY
     Dosage: 2.2 G, 2X/DAY
     Route: 042

REACTIONS (9)
  - Cellulitis [None]
  - Haemorrhage intracranial [Fatal]
  - Leukocytosis [None]
  - Blood urea increased [None]
  - Surgical procedure repeated [None]
  - Tracheostomy [None]
  - Drug ineffective [Fatal]
  - Blood creatinine increased [None]
  - Staphylococcal infection [None]
